FAERS Safety Report 8969390 (Version 1)
Quarter: 2012Q4

REPORT INFORMATION
  Report Type: 
  Country: US (occurrence: US)
  Receive Date: 20121218
  Receipt Date: 20121218
  Transmission Date: 20130627
  Serious: No
  Sender: FDA-Public Use
  Company Number: US-BRISTOL-MYERS SQUIBB COMPANY-16631608

PATIENT
  Age: 39 Year
  Sex: Female

DRUGS (5)
  1. ABILIFY [Suspect]
     Indication: MAJOR DEPRESSION
     Route: 048
  2. ABILIFY [Suspect]
     Indication: ANXIETY
     Route: 048
  3. EFFEXOR [Concomitant]
  4. RISPERIDONE [Concomitant]
  5. COGENTIN [Concomitant]

REACTIONS (3)
  - Face oedema [Unknown]
  - Oedema peripheral [Unknown]
  - Stomatitis [Unknown]
